FAERS Safety Report 4373780-1 (Version None)
Quarter: 2004Q2

REPORT INFORMATION
  Report Type: 
  Country: None (occurrence: None)
  Receive Date: 20040607
  Receipt Date: 20040607
  Transmission Date: 20050107
  Serious: No
  Sender: FDA-Public Use
  Company Number: None

PATIENT
  Age: 62 Year
  Sex: Male
  Weight: 68 kg

DRUGS (14)
  1. CLOZAPINE [Suspect]
     Indication: SCHIZOAFFECTIVE DISORDER
     Dosage: 37.5 MG BID ORAL
     Route: 048
     Dates: start: 20040301, end: 20040401
  2. BENZTROPINE MESYLATE [Concomitant]
  3. DIVALPROEX SODIUM [Concomitant]
  4. DOCUSATE [Concomitant]
  5. HALOPERIDOL [Concomitant]
  6. LORAZEPAM [Concomitant]
  7. NICOTINE [Concomitant]
  8. PIPERACILLIN/TAZOBACTAM [Concomitant]
  9. SENNA [Concomitant]
  10. HALOPERIDOL DECANOATE [Concomitant]
  11. .. [Concomitant]
  12. .. [Concomitant]
  13. SIMETHICONE [Concomitant]
  14. ALBUTEROL [Concomitant]

REACTIONS (2)
  - NEUTROPHIL COUNT DECREASED [None]
  - WHITE BLOOD CELL COUNT DECREASED [None]
